FAERS Safety Report 12314731 (Version 1)
Quarter: 2016Q2

REPORT INFORMATION
  Report Type: Spontaneous
  Country: IT (occurrence: IT)
  Receive Date: 20160428
  Receipt Date: 20160428
  Transmission Date: 20160815
  Serious: Yes (Other)
  Sender: FDA-Public Use
  Company Number: IT-WATSON-2016-08665

PATIENT
  Age: 66 Year
  Sex: Female

DRUGS (3)
  1. BENDAMUSTINE (UNKNOWN) [Suspect]
     Active Substance: BENDAMUSTINE
     Indication: PLASMA CELL MYELOMA
     Dosage: 40 MG/M2, DAILY, 1 AND 2 IN A 28-DAY CYCLE
     Route: 065
  2. DEXAMETHASONE (UNKNOWN) [Suspect]
     Active Substance: DEXAMETHASONE
     Indication: PLASMA CELL MYELOMA
     Dosage: LOW-DOSE, 1,8,15 IN A 28-DAY CYCLE
     Route: 065
  3. LENALIDOMIDE [Suspect]
     Active Substance: LENALIDOMIDE
     Indication: PLASMA CELL MYELOMA
     Dosage: 10 MG, DAILY, 1-21 IN A 28-DAY CYCLE
     Route: 048

REACTIONS (1)
  - Deep vein thrombosis [Unknown]
